FAERS Safety Report 20020526 (Version 1)
Quarter: 2021Q4

REPORT INFORMATION
  Report Type: Spontaneous
  Country: ES (occurrence: ES)
  Receive Date: 20211101
  Receipt Date: 20211101
  Transmission Date: 20220304
  Serious: Yes (Hospitalization, Other)
  Sender: FDA-Public Use
  Company Number: ES-ARBOR PHARMACEUTICALS, LLC-ES-2021ARB001285

PATIENT
  Age: 49 Year
  Sex: Male

DRUGS (1)
  1. AMPHETAMINE SULFATE [Suspect]
     Active Substance: AMPHETAMINE SULFATE
     Indication: Product used for unknown indication
     Dosage: 7 G, PER WEEK
     Route: 045

REACTIONS (2)
  - Mitral valve prolapse [Recovering/Resolving]
  - Drug abuse [Unknown]
